FAERS Safety Report 18211554 (Version 3)
Quarter: 2020Q4

REPORT INFORMATION
  Report Type: Spontaneous
  Country: US (occurrence: US)
  Receive Date: 20200831
  Receipt Date: 20201012
  Transmission Date: 20210113
  Serious: Yes (Hospitalization, Other)
  Sender: FDA-Public Use
  Company Number: US-HIKMA PHARMACEUTICALS USA INC.-US-H14001-20-04009

PATIENT
  Age: 87 Year
  Sex: Female

DRUGS (24)
  1. ONDANSETRON [Concomitant]
     Active Substance: ONDANSETRON
     Indication: NAUSEA
     Route: 065
  2. LEUCOVORIN. [Suspect]
     Active Substance: LEUCOVORIN
     Dosage: 550 MG, INTRAVENOUSLY (IV) THROUGH AN ESTABLISHED IV LINE (REPORTED AS PIGGY BACK) OVER 30 MINUTES
     Route: 042
     Dates: start: 20200629
  3. LEUCOVORIN. [Suspect]
     Active Substance: LEUCOVORIN
     Dosage: 550 MG, INTRAVENOUSLY (IV) THROUGH AN ESTABLISHED IV LINE (REPORTED AS PIGGY BACK) OVER 30 MINUTES
     Route: 042
     Dates: start: 20200728
  4. FLUOROURACIL. [Suspect]
     Active Substance: FLUOROURACIL
     Indication: NEUROENDOCRINE TUMOUR
     Dosage: UNKNOWN
     Route: 065
  5. HYDROCORTISONE. [Concomitant]
     Active Substance: HYDROCORTISONE
     Indication: RASH
     Dosage: UNKNOWN
     Route: 061
  6. LEUCOVORIN. [Suspect]
     Active Substance: LEUCOVORIN
     Dosage: 550 MG, INTRAVENOUSLY (IV) THROUGH AN ESTABLISHED IV LINE (REPORTED AS PIGGY BACK) OVER 30 MINUTES
     Route: 042
     Dates: start: 20200810
  7. LEUCOVORIN NOVAPLUS [CALCIUM FOLINATE] [Suspect]
     Active Substance: LEUCOVORIN CALCIUM
     Dosage: 550 MG, INTRAVENOUSLY (IV) THROUGH AN ESTABLISHED IV LINE (REPORTED AS PIGGY BACK) OVER 30 MINUTES
     Route: 042
     Dates: start: 20200713
  8. LOMOTIL [Concomitant]
     Active Substance: ATROPINE SULFATE\DIPHENOXYLATE HYDROCHLORIDE
     Indication: DIARRHOEA
     Route: 065
  9. METOPROLOL TARTRATE. [Concomitant]
     Active Substance: METOPROLOL TARTRATE
     Indication: HYPERTENSION
     Route: 065
  10. LEUCOVORIN. [Suspect]
     Active Substance: LEUCOVORIN
     Dosage: 550 MG, INTRAVENOUSLY (IV) THROUGH AN ESTABLISHED IV LINE (REPORTED AS PIGGY BACK) OVER 30 MINUTES
     Route: 042
     Dates: start: 20200713
  11. LEUCOVORIN NOVAPLUS [CALCIUM FOLINATE] [Suspect]
     Active Substance: LEUCOVORIN CALCIUM
     Dosage: 550 MG, INTRAVENOUSLY (IV) THROUGH AN ESTABLISHED IV LINE (REPORTED AS PIGGY BACK) OVER 30 MINUTES
     Route: 042
     Dates: start: 20200629
  12. PROCHLORPERAZINE. [Concomitant]
     Active Substance: PROCHLORPERAZINE
     Indication: NAUSEA
     Route: 065
  13. MULTIVITAMINS [Concomitant]
     Active Substance: VITAMINS
     Indication: PRODUCT USED FOR UNKNOWN INDICATION
     Route: 065
  14. LEUCOVORIN NOVAPLUS [CALCIUM FOLINATE] [Suspect]
     Active Substance: LEUCOVORIN CALCIUM
     Dosage: 550 MG, INTRAVENOUSLY (IV) THROUGH AN ESTABLISHED IV LINE (REPORTED AS PIGGY BACK) OVER 30 MINUTES
     Route: 042
     Dates: start: 20200601
  15. LEUCOVORIN. [Suspect]
     Active Substance: LEUCOVORIN
     Indication: NEUROENDOCRINE TUMOUR
     Dosage: 550 MG, INTRAVENOUSLY (IV) THROUGH AN ESTABLISHED IV LINE (REPORTED AS PIGGY BACK) OVER 30 MINUTES
     Route: 042
     Dates: start: 20200518
  16. LEUCOVORIN. [Suspect]
     Active Substance: LEUCOVORIN
     Dosage: 550 MG, INTRAVENOUSLY (IV) THROUGH AN ESTABLISHED IV LINE (REPORTED AS PIGGY BACK) OVER 30 MINUTES
     Route: 042
     Dates: start: 20200601
  17. LEUCOVORIN NOVAPLUS [CALCIUM FOLINATE] [Suspect]
     Active Substance: LEUCOVORIN CALCIUM
     Indication: NEUROENDOCRINE TUMOUR
     Dosage: 550 MG, INTRAVENOUSLY (IV) THROUGH AN ESTABLISHED IV LINE (REPORTED AS PIGGY BACK) OVER 30 MINUTES
     Route: 042
     Dates: start: 20200518
  18. ASPIRIN. [Concomitant]
     Active Substance: ASPIRIN
     Indication: PROPHYLAXIS
     Route: 065
  19. HYDROCHLOROTHIAZIDE. [Concomitant]
     Active Substance: HYDROCHLOROTHIAZIDE
     Indication: HYPERTENSION
     Route: 065
  20. RAMIPRIL. [Concomitant]
     Active Substance: RAMIPRIL
     Indication: HYPERTENSION
     Route: 065
  21. IRINOTECAN [Suspect]
     Active Substance: IRINOTECAN
     Indication: NEUROENDOCRINE TUMOUR
     Dosage: UNKNOWN
     Route: 065
  22. LEUCOVORIN NOVAPLUS [CALCIUM FOLINATE] [Suspect]
     Active Substance: LEUCOVORIN CALCIUM
     Dosage: 550 MG, INTRAVENOUSLY (IV) THROUGH AN ESTABLISHED IV LINE (REPORTED AS PIGGY BACK) OVER 30 MINUTES
     Route: 042
     Dates: start: 20200728
  23. LEUCOVORIN NOVAPLUS [CALCIUM FOLINATE] [Suspect]
     Active Substance: LEUCOVORIN CALCIUM
     Dosage: 550 MG, INTRAVENOUSLY (IV) THROUGH AN ESTABLISHED IV LINE (REPORTED AS PIGGY BACK) OVER 30 MINUTES
     Route: 042
     Dates: start: 20200810
  24. TYLENOL [Concomitant]
     Active Substance: ACETAMINOPHEN
     Indication: PAIN
     Route: 065

REACTIONS (1)
  - Small intestinal obstruction [Recovered/Resolved]

NARRATIVE: CASE EVENT DATE: 20200603
